FAERS Safety Report 8452693-X (Version None)
Quarter: 2012Q2

REPORT INFORMATION
  Report Type: 
  Country: None (occurrence: None)
  Receive Date: 20120620
  Receipt Date: 20120618
  Transmission Date: 20120825
  Serious: Yes (Hospitalization)
  Sender: FDA-Public Use
  Company Number: PHHY2012FR049712

PATIENT
  Sex: Female
  Weight: 70 kg

DRUGS (2)
  1. GILENYA [Suspect]
     Indication: MULTIPLE SCLEROSIS
     Dosage: 1 DF, DAILY
     Route: 048
     Dates: start: 20120531, end: 20120611
  2. SIBELIUM [Concomitant]
     Indication: MIGRAINE
     Dosage: UNK UKN, UNK
     Dates: start: 20111122

REACTIONS (3)
  - WEIGHT INCREASED [None]
  - HYPERSENSITIVITY [None]
  - GENERALISED OEDEMA [None]
